FAERS Safety Report 8585502-9 (Version None)
Quarter: 2012Q3

REPORT INFORMATION
  Report Type: 
  Country: None (occurrence: None)
  Receive Date: 20120810
  Receipt Date: 20120802
  Transmission Date: 20120928
  Serious: Yes (Hospitalization)
  Sender: FDA-Public Use
  Company Number: US-BAYER-2012-028773

PATIENT
  Age: 30 Year
  Sex: Female

DRUGS (19)
  1. HYDROCHLOROTHIAZIDE [Concomitant]
     Dosage: 50 MG, UNK
  2. KLOR-CON [Concomitant]
  3. KETOROLAC TROMETHAMINE [Concomitant]
  4. YASMIN [Suspect]
     Dosage: UNK
     Dates: start: 20081101
  5. SULFAMETHOXAZOLE AND TRIMETHOPRIM [Concomitant]
     Dosage: 400-800 MG
     Route: 048
     Dates: start: 20090827
  6. MECLIZINE [Concomitant]
     Dosage: 25 MG, UNK
     Route: 048
     Dates: start: 20090827
  7. ZOFRAN [Concomitant]
     Dosage: 8 MG, UNK
  8. YAZ [Suspect]
     Indication: PREMENSTRUAL SYNDROME
  9. GEODON [Concomitant]
  10. CYMBALTA [Concomitant]
  11. ATIVAN [Concomitant]
  12. TORADOL [Concomitant]
     Dosage: 10 MG, UNK
     Route: 048
  13. ZANAFLEX [Concomitant]
  14. FLUTICASONE PROPIONATE [Concomitant]
     Dosage: 50 ?G, UNK
  15. WELLBUTRIN [Concomitant]
  16. VALIUM [Concomitant]
     Dosage: 10 MG, UNK
  17. TORADOL /PHENERGAN [Concomitant]
     Route: 030
  18. PHENERGAN HCL [Concomitant]
     Dosage: 25 MG, UNK
  19. SEROQUEL [Concomitant]
     Indication: SUICIDAL IDEATION
     Dosage: 25 MG, PRN

REACTIONS (3)
  - DYSPNOEA [None]
  - CHEST PAIN [None]
  - PULMONARY EMBOLISM [None]
